FAERS Safety Report 14337819 (Version 1)
Quarter: 2017Q4

REPORT INFORMATION
  Report Type: Spontaneous
  Country: FR (occurrence: FR)
  Receive Date: 20171229
  Receipt Date: 20171229
  Transmission Date: 20180321
  Serious: Yes (Hospitalization)
  Sender: FDA-Public Use
  Company Number: FR-TELIGENT, INC-IGIL20170840

PATIENT
  Age: 76 Year
  Sex: Male

DRUGS (2)
  1. CEFEPIME [Suspect]
     Active Substance: CEFEPIME HYDROCHLORIDE
     Indication: PSEUDOMONAL BACTERAEMIA
     Route: 041
  2. CEFTAZIDIME. [Suspect]
     Active Substance: CEFTAZIDIME
     Indication: PSEUDOMONAL BACTERAEMIA
     Route: 041

REACTIONS (5)
  - Acute kidney injury [Not Recovered/Not Resolved]
  - Anuria [Not Recovered/Not Resolved]
  - Overdose [Not Recovered/Not Resolved]
  - Confusional state [Not Recovered/Not Resolved]
  - Somnolence [Not Recovered/Not Resolved]

NARRATIVE: CASE EVENT DATE: 20171204
